FAERS Safety Report 21854686 (Version 1)
Quarter: 2023Q1

REPORT INFORMATION
  Report Type: Spontaneous
  Country: US (occurrence: US)
  Receive Date: 20230112
  Receipt Date: 20230112
  Transmission Date: 20230418
  Serious: No
  Sender: FDA-Public Use
  Company Number: US-PERRIGO-22US010895

PATIENT
  Age: 70 Year
  Sex: Female
  Weight: 88.435 kg

DRUGS (2)
  1. IBUPROFEN [Suspect]
     Active Substance: IBUPROFEN
     Indication: Abdominal pain
     Dosage: 200 MG, QD
     Route: 048
     Dates: start: 20220728
  2. IBUPROFEN [Suspect]
     Active Substance: IBUPROFEN
     Indication: Inflammation

REACTIONS (1)
  - Incorrect product administration duration [Unknown]

NARRATIVE: CASE EVENT DATE: 20220807
